FAERS Safety Report 10004351 (Version 1)
Quarter: 2014Q1

REPORT INFORMATION
  Report Type: Spontaneous
  Country: US (occurrence: US)
  Receive Date: 20140312
  Receipt Date: 20140312
  Transmission Date: 20141002
  Serious: No
  Sender: FDA-Public Use
  Company Number: US-B.I. PHARMACEUTICALS,INC./RIDGEFIELD-2014-BI-09511BP

PATIENT
  Sex: Female

DRUGS (12)
  1. SPIRIVA [Suspect]
     Indication: CHRONIC OBSTRUCTIVE PULMONARY DISEASE
     Dosage: 18 MCG
     Route: 055
     Dates: start: 2005
  2. THEODUR [Concomitant]
     Route: 048
  3. METFORMIN [Concomitant]
     Dosage: 1000 MG
     Route: 048
  4. LOTENSIN [Concomitant]
     Dosage: 10 MG
     Route: 048
  5. COREG [Concomitant]
     Dosage: 1.5 MG
     Route: 048
  6. PROTONIX [Concomitant]
     Dosage: 40 MG
     Route: 048
  7. FERROUS SULFATE [Concomitant]
     Route: 048
  8. ZOCOR [Concomitant]
     Dosage: 40 MG
     Route: 048
  9. MULTIVITAMIN [Concomitant]
     Route: 048
  10. ZYRTEC [Concomitant]
     Dosage: 10 MG
     Route: 048
  11. PLAVIX [Concomitant]
     Route: 048
  12. ALBUTEROL [Concomitant]
     Route: 055

REACTIONS (2)
  - Hypoaesthesia [Not Recovered/Not Resolved]
  - Vision blurred [Not Recovered/Not Resolved]
